FAERS Safety Report 23421102 (Version 6)
Quarter: 2024Q3

REPORT INFORMATION
  Report Type: Spontaneous
  Country: JP (occurrence: JP)
  Receive Date: 20240119
  Receipt Date: 20240725
  Transmission Date: 20241017
  Serious: Yes (Other)
  Sender: ABBVIE
  Company Number: JP-MOCHP-A20221416

PATIENT
  Age: 60 Year
  Sex: Female

DRUGS (10)
  1. LEXAPRO [Suspect]
     Active Substance: ESCITALOPRAM OXALATE
     Indication: Anxiety disorder
     Dosage: 10 003
     Route: 048
  2. LEXAPRO [Suspect]
     Active Substance: ESCITALOPRAM OXALATE
     Indication: Anxiety disorder
     Dosage: 9 003
     Route: 048
     Dates: start: 202211
  3. LEXAPRO [Suspect]
     Active Substance: ESCITALOPRAM OXALATE
     Indication: Anxiety disorder
     Dosage: 2.5 003
     Route: 048
  4. LEXAPRO [Suspect]
     Active Substance: ESCITALOPRAM OXALATE
     Indication: Anxiety disorder
     Dosage: 8.5 003
     Route: 048
     Dates: start: 202010
  5. LEXAPRO [Suspect]
     Active Substance: ESCITALOPRAM OXALATE
     Indication: Anxiety disorder
     Dosage: 9 003
     Route: 048
  6. LEXAPRO [Suspect]
     Active Substance: ESCITALOPRAM OXALATE
     Indication: Anxiety disorder
     Dosage: 8.5 003
     Route: 048
  7. LEXAPRO [Suspect]
     Active Substance: ESCITALOPRAM OXALATE
     Indication: Anxiety disorder
     Dosage: 8.5 003
     Route: 048
     Dates: end: 20240621
  8. LEXAPRO [Suspect]
     Active Substance: ESCITALOPRAM OXALATE
     Indication: Anxiety disorder
     Dosage: 5 003
     Route: 048
  9. LEXAPRO [Suspect]
     Active Substance: ESCITALOPRAM OXALATE
     Indication: Anxiety disorder
     Dosage: 2.5 003
     Route: 048
     Dates: end: 20240621
  10. ESTRIOL [Suspect]
     Active Substance: ESTRIOL
     Indication: Genitourinary syndrome of menopause
     Dosage: FREQUENCY EVERY 1 HOUR
     Route: 048

REACTIONS (13)
  - Glaucoma [Unknown]
  - Wrong technique in product usage process [Unknown]
  - Anal haemorrhage [Unknown]
  - Vision blurred [Unknown]
  - Intraocular pressure increased [Unknown]
  - Dysuria [Recovering/Resolving]
  - Abnormal sensation in eye [Unknown]
  - Vitreous floaters [Unknown]
  - Visual impairment [Unknown]
  - Underdose [Unknown]
  - Drug ineffective [Unknown]
  - Alopecia areata [Unknown]
  - Urinary tract discomfort [Recovering/Resolving]

NARRATIVE: CASE EVENT DATE: 20240601
